FAERS Safety Report 25140358 (Version 4)
Quarter: 2025Q4

REPORT INFORMATION
  Report Type: Report from Study
  Country: EU (occurrence: EU)
  Receive Date: 20250331
  Receipt Date: 20251224
  Transmission Date: 20260117
  Serious: Yes (Life-Threatening, Hospitalization)
  Sender: ALEXION PHARMACEUTICALS
  Company Number: EU-ASTRAZENECA-202503GLO021229DE

PATIENT
  Age: 68 Year
  Sex: Male
  Weight: 52 kg

DRUGS (16)
  1. DURVALUMAB [Suspect]
     Active Substance: DURVALUMAB
     Indication: Non-small cell lung cancer metastatic
     Dosage: UNK
  2. TREMELIMUMAB [Suspect]
     Active Substance: TREMELIMUMAB
     Indication: Non-small cell lung cancer metastatic
     Dosage: UNK
  3. CARBOPLATIN [Suspect]
     Active Substance: CARBOPLATIN
     Indication: Non-small cell lung cancer metastatic
     Dosage: UNK, Q3W
     Dates: start: 20250214
  4. PEMETREXED [Suspect]
     Active Substance: PEMETREXED
     Indication: Non-small cell lung cancer metastatic
     Dosage: UNK, Q3W
     Dates: start: 20250214
  5. DEXAMETHASONE [Concomitant]
     Active Substance: DEXAMETHASONE
     Indication: Premedication
     Dosage: 4 MILLIGRAM, BID
     Route: 061
  6. ENOXAPARIN [Concomitant]
     Active Substance: ENOXAPARIN
     Indication: Adverse event
     Dosage: 60 MILLIGRAM, BID
  7. LEVOTHYROXINE [Concomitant]
     Active Substance: LEVOTHYROXINE
     Indication: Premedication
     Dosage: 100 MICROGRAM, QD
     Route: 061
  8. METAMIZOL [Concomitant]
     Active Substance: METAMIZOLE SODIUM
     Indication: Premedication
     Dosage: 500 MILLIGRAM, FOUR TIMES DAILY
     Route: 061
  9. ROSUVASTATIN [Concomitant]
     Active Substance: ROSUVASTATIN
     Indication: Premedication
     Dosage: 40 MILLIGRAM, QD
     Route: 061
  10. IBUPROFEN [Concomitant]
     Active Substance: IBUPROFEN
     Indication: Premedication
     Dosage: 600 MILLIGRAM, TID
     Route: 061
     Dates: end: 20250319
  11. NEBIVOLOL HYDROCHLORIDE [Concomitant]
     Active Substance: NEBIVOLOL HYDROCHLORIDE
     Indication: Premedication
     Dosage: 1.25 MILLIGRAM, QD
     Route: 061
  12. DALTEPARIN [Concomitant]
     Active Substance: DALTEPARIN
     Indication: Adverse event
     Dosage: UNK, QD
     Dates: start: 20250218, end: 20250218
  13. GRANULOCYTE COLONY-STIMULATING FACTOR NOS [Concomitant]
     Active Substance: GRANULOCYTE COLONY-STIMULATING FACTOR NOS
     Indication: Adverse event
     Dosage: UNK, QD
     Dates: start: 20250317, end: 20250321
  14. FOLIC ACID [Concomitant]
     Active Substance: FOLIC ACID
     Indication: Prophylaxis
     Dosage: 0.4 MILLIGRAM, QD
     Route: 061
  15. PANTOPRAZOLE SODIUM [Concomitant]
     Active Substance: PANTOPRAZOLE SODIUM
     Indication: Prophylaxis
     Dosage: 40 MILLIGRAM, QD
     Route: 061
  16. TAPENTADOL HYDROCHLORIDE [Concomitant]
     Active Substance: TAPENTADOL HYDROCHLORIDE
     Indication: Premedication
     Dosage: 100 MILLIGRAM, BID
     Route: 061
     Dates: start: 20250213

REACTIONS (6)
  - White blood cell count decreased [Recovered/Resolved]
  - Neutrophil count decreased [Recovered/Resolved]
  - Anaemia [Not Recovered/Not Resolved]
  - Asthenia [Recovered/Resolved]
  - Pneumonia [Recovered/Resolved]
  - Platelet count decreased [Recovered/Resolved]

NARRATIVE: CASE EVENT DATE: 20250317
